FAERS Safety Report 20388074 (Version 6)
Quarter: 2023Q2

REPORT INFORMATION
  Report Type: Report from Study
  Country: US (occurrence: US)
  Receive Date: 20220128
  Receipt Date: 20230620
  Transmission Date: 20230722
  Serious: Yes (Hospitalization, Other)
  Sender: FDA-Public Use
  Company Number: US-TAKEDA-2022TUS005526

PATIENT
  Age: 37 Year
  Sex: Male

DRUGS (12)
  1. TEDUGLUTIDE [Suspect]
     Active Substance: TEDUGLUTIDE
     Indication: Short-bowel syndrome
     Dosage: 3.4 MILLIGRAM, QD
     Route: 042
     Dates: start: 20190418, end: 20190828
  2. TEDUGLUTIDE [Suspect]
     Active Substance: TEDUGLUTIDE
     Indication: Short-bowel syndrome
     Dosage: 3.4 MILLIGRAM, QD
     Route: 042
     Dates: start: 20190418, end: 20190828
  3. TEDUGLUTIDE [Suspect]
     Active Substance: TEDUGLUTIDE
     Indication: Short-bowel syndrome
     Dosage: 3.4 MILLIGRAM, QD
     Route: 042
     Dates: start: 20190418, end: 20190828
  4. TEDUGLUTIDE [Suspect]
     Active Substance: TEDUGLUTIDE
     Indication: Short-bowel syndrome
     Dosage: 3.4 MILLIGRAM, QD
     Route: 042
     Dates: start: 20190418, end: 20190828
  5. VANCOMYCIN [Concomitant]
     Active Substance: VANCOMYCIN
     Indication: Sepsis
     Dosage: 750 MILLIGRAM, BID
     Route: 042
     Dates: start: 20210131, end: 20210203
  6. VANCOMYCIN [Concomitant]
     Active Substance: VANCOMYCIN
     Indication: Vascular device infection
     Dosage: 1250 MILLIGRAM, SINGLE
     Route: 042
     Dates: start: 20210130, end: 20210130
  7. VANCOMYCIN [Concomitant]
     Active Substance: VANCOMYCIN
     Dosage: 750 MILLIGRAM, BID
     Route: 042
     Dates: start: 20210321, end: 20210401
  8. MICAFUNGIN [Concomitant]
     Active Substance: MICAFUNGIN SODIUM
     Indication: Sepsis
     Dosage: 100 MILLIGRAM, QD
     Route: 042
     Dates: start: 20201015
  9. MICAFUNGIN [Concomitant]
     Active Substance: MICAFUNGIN SODIUM
     Indication: Vascular device infection
     Dosage: 100 MILLIGRAM, QD
     Route: 042
     Dates: start: 20210809, end: 20210823
  10. ENOXAPARIN [Concomitant]
     Active Substance: ENOXAPARIN
     Indication: Sepsis
     Dosage: 60 MILLIGRAM, BID
     Route: 058
     Dates: start: 20201015
  11. ENOXAPARIN [Concomitant]
     Active Substance: ENOXAPARIN
     Indication: Subclavian vein thrombosis
     Dosage: 60 MILLIGRAM, SINGLE
     Route: 058
     Dates: start: 20210421, end: 20210421
  12. DAPTOMYCIN [Concomitant]
     Active Substance: DAPTOMYCIN
     Indication: Vascular device infection
     Dosage: 600 MILLIGRAM, QD
     Route: 042
     Dates: start: 20210922, end: 20211022

REACTIONS (5)
  - Vascular device infection [Recovered/Resolved]
  - Subclavian vein thrombosis [Recovered/Resolved]
  - Bacteraemia [Recovered/Resolved]
  - Cartilage injury [Recovered/Resolved]
  - Herpes zoster [Recovered/Resolved]

NARRATIVE: CASE EVENT DATE: 20201202
